FAERS Safety Report 23680924 (Version 7)
Quarter: 2025Q1

REPORT INFORMATION
  Report Type: Spontaneous
  Country: US (occurrence: US)
  Receive Date: 20240328
  Receipt Date: 20250326
  Transmission Date: 20250408
  Serious: Yes (Other)
  Sender: ROCHE
  Company Number: US-ROCHE-3515703

PATIENT
  Age: 33 Year
  Sex: Female
  Weight: 72.12 kg

DRUGS (15)
  1. OCREVUS [Suspect]
     Active Substance: OCRELIZUMAB
     Indication: Relapsing-remitting multiple sclerosis
     Dosage: LAST OCRELIZUMAB DOSE (ROUND 2) 09/AUG/2023 (2 VIAL), NEXT DOSE WAS 600 MG EVERY 6 MONTH
     Route: 042
     Dates: start: 20230308, end: 20240315
  2. OCREVUS [Suspect]
     Active Substance: OCRELIZUMAB
     Route: 042
  3. OCREVUS [Suspect]
     Active Substance: OCRELIZUMAB
     Route: 042
     Dates: start: 20240308, end: 20240927
  4. LANSOPRAZOLE [Concomitant]
     Active Substance: LANSOPRAZOLE
     Dosage: 1 CAPSULE EVERY MORNING 30 MINUTES BEFORE FIRST MEAL ON EMPTY STOMACH DAILY
     Route: 048
     Dates: start: 20190829, end: 20190829
  5. OMEPRAZOLE [Concomitant]
     Active Substance: OMEPRAZOLE
     Route: 048
     Dates: start: 20190829
  6. VITAMIN D3 [Concomitant]
     Active Substance: CHOLECALCIFEROL
  7. GABAPENTIN [Concomitant]
     Active Substance: GABAPENTIN
  8. CYCLOBENZAPRINE [Concomitant]
     Active Substance: CYCLOBENZAPRINE
  9. MEDROL [Concomitant]
     Active Substance: METHYLPREDNISOLONE
  10. STRATTERA [Concomitant]
     Active Substance: ATOMOXETINE HYDROCHLORIDE
  11. TYLENOL [Concomitant]
     Active Substance: ACETAMINOPHEN
  12. PEPCID [Concomitant]
     Active Substance: FAMOTIDINE
  13. SOLU-MEDROL [Concomitant]
     Active Substance: METHYLPREDNISOLONE SODIUM SUCCINATE
  14. BENADRYL [Concomitant]
     Active Substance: DIPHENHYDRAMINE HYDROCHLORIDE
  15. BRIUMVI [Concomitant]
     Active Substance: UBLITUXIMAB-XIIY

REACTIONS (21)
  - Bronchitis [Recovered/Resolved]
  - Gingivitis [Recovered/Resolved]
  - Vitamin D decreased [Unknown]
  - Bronchitis [Recovered/Resolved]
  - Tinnitus [Unknown]
  - Photosensitivity reaction [Unknown]
  - Heart rate irregular [Unknown]
  - Dyspnoea [Unknown]
  - Depression [Unknown]
  - Blood creatinine increased [Unknown]
  - Gingivitis [Recovered/Resolved]
  - Lymphadenopathy [Unknown]
  - Pain [Unknown]
  - Chills [Unknown]
  - Gastrooesophageal reflux disease [Unknown]
  - Abdominal pain upper [Unknown]
  - Nausea [Unknown]
  - Neck pain [Unknown]
  - Back pain [Unknown]
  - Vitamin D deficiency [Not Recovered/Not Resolved]
  - Viral infection [Recovered/Resolved]

NARRATIVE: CASE EVENT DATE: 20240210
